FAERS Safety Report 8393139-X (Version None)
Quarter: 2012Q2

REPORT INFORMATION
  Report Type: 
  Country: None (occurrence: None)
  Receive Date: 20120529
  Receipt Date: 20120508
  Transmission Date: 20120825
  Serious: No
  Sender: FDA-Public Use
  Company Number: US-ABBOTT-12P-163-0934043-00

PATIENT
  Sex: Male
  Weight: 108.05 kg

DRUGS (9)
  1. SYNTHROID [Concomitant]
     Indication: HYPOTHYROIDISM
     Dosage: INCREASED 12.5 MCG EVERY 3 MONTHS
     Route: 048
  2. ANDROGEL [Suspect]
     Indication: BLOOD TESTOSTERONE DECREASED
     Dates: start: 20110601, end: 20111201
  3. DESMOPRESSIN ACETATE [Concomitant]
     Indication: RENAL DISORDER
  4. TESTOSTERONE [Concomitant]
     Indication: BLOOD TESTOSTERONE DECREASED
     Route: 050
     Dates: start: 20120301
  5. ANDROGEL [Suspect]
     Indication: BLOOD TESTOSTERONE DECREASED
     Dosage: 11 PUMPS DAILY
     Route: 061
     Dates: start: 20111201, end: 20120226
  6. HYDROCORTISONE [Concomitant]
     Indication: PRODUCT USED FOR UNKNOWN INDICATION
     Dosage: 20 MG IN AM AND 10 MG AT NIGHT
     Route: 048
  7. MULTI-VITAMIN [Concomitant]
     Indication: PRODUCT USED FOR UNKNOWN INDICATION
     Route: 048
  8. SYNTHROID [Concomitant]
     Route: 048
  9. FISH OIL [Concomitant]
     Indication: PRODUCT USED FOR UNKNOWN INDICATION

REACTIONS (10)
  - ASTHENIA [None]
  - FEELING ABNORMAL [None]
  - ANXIETY [None]
  - INCORRECT DOSE ADMINISTERED [None]
  - WEIGHT INCREASED [None]
  - DEPRESSION [None]
  - BLOOD TESTOSTERONE DECREASED [None]
  - LIBIDO DECREASED [None]
  - DRUG INEFFECTIVE [None]
  - STRESS [None]
